FAERS Safety Report 25979516 (Version 2)
Quarter: 2025Q4

REPORT INFORMATION
  Report Type: Spontaneous
  Country: US (occurrence: US)
  Receive Date: 20251030
  Receipt Date: 20251113
  Transmission Date: 20260117
  Serious: Yes (Hospitalization)
  Sender: TEVA
  Company Number: US-TEVA-VS-3384685

PATIENT
  Age: 56 Year
  Sex: Female

DRUGS (6)
  1. VANCOMYCIN [Suspect]
     Active Substance: VANCOMYCIN
     Indication: Chemical burn
     Route: 065
  2. DOXYCYCLINE [Suspect]
     Active Substance: DOXYCYCLINE
     Indication: Chemical burn
     Route: 065
  3. CEFTRIAXONE [Suspect]
     Active Substance: CEFTRIAXONE
     Indication: Prophylaxis
     Route: 065
  4. PHENOL [Suspect]
     Active Substance: PHENOL
     Indication: Neurolysis
     Route: 065
  5. PARAFFIN [Suspect]
     Active Substance: PARAFFIN
     Indication: Chemical burn
     Route: 065
  6. TRIAMCINOLONE [Suspect]
     Active Substance: TRIAMCINOLONE
     Indication: Chemical burn
     Route: 065

REACTIONS (7)
  - Chemical burn [Recovered/Resolved]
  - Ulcer [Recovered/Resolved]
  - Pseudomonas infection [Unknown]
  - Proteus infection [Unknown]
  - Soft tissue necrosis [Recovered/Resolved]
  - Drug ineffective [Unknown]
  - Cellulitis [Unknown]
